FAERS Safety Report 9386596 (Version 1)
Quarter: 2013Q3

REPORT INFORMATION
  Report Type: Spontaneous
  Country: US (occurrence: None)
  Receive Date: 20130703
  Receipt Date: 20130703
  Transmission Date: 20140515
  Serious: Yes (Hospitalization)
  Sender: FDA-Public Use
  Company Number: None

PATIENT
  Age: 15 Year
  Sex: Female
  Weight: 74 kg

DRUGS (9)
  1. THYMOGLOBULIN [Suspect]
     Dosage: 40 MG X1 , 100 MG X2 , 145 MG X1 Q24HR IV
     Route: 042
     Dates: start: 20130510, end: 20130513
  2. AMLODIPINE [Concomitant]
  3. TACROLIMUS [Concomitant]
  4. PANTOPRAZOLE [Concomitant]
  5. GANCICLOVIR [Concomitant]
  6. ACETAMINOPHEN [Concomitant]
  7. FUROSEMIDE [Concomitant]
  8. NYSTATIN [Concomitant]
  9. ZOSYN [Concomitant]

REACTIONS (11)
  - Hypertension [None]
  - Blood glucose increased [None]
  - Pain in jaw [None]
  - Arthralgia [None]
  - Asthenia [None]
  - Pyrexia [None]
  - Allodynia [None]
  - C-reactive protein increased [None]
  - Red blood cell sedimentation rate increased [None]
  - White blood cell count increased [None]
  - Serum sickness [None]
